FAERS Safety Report 9726788 (Version 1)
Quarter: 2013Q4

REPORT INFORMATION
  Report Type: Spontaneous
  Country: US (occurrence: US)
  Receive Date: 20131203
  Receipt Date: 20131203
  Transmission Date: 20140711
  Serious: No
  Sender: FDA-Public Use
  Company Number: US-NOVEN-13US006217

PATIENT
  Sex: Female

DRUGS (6)
  1. FENTANYL [Suspect]
     Indication: SCIATICA
     Dosage: 25 UG/HR, Q 3DAYS
     Route: 062
     Dates: start: 201301
  2. VICODIN [Concomitant]
     Indication: PAIN
     Dosage: UNK
     Route: 048
  3. PREDNISONE [Concomitant]
     Route: 048
  4. BACLOFEN [Concomitant]
     Route: 048
  5. ZOFRAN                             /00955301/ [Concomitant]
     Indication: NAUSEA
     Route: 048
  6. ZOFRAN                             /00955301/ [Concomitant]
     Indication: VOMITING

REACTIONS (10)
  - Dehydration [Recovered/Resolved]
  - Influenza [Recovered/Resolved]
  - Palpitations [Not Recovered/Not Resolved]
  - Insomnia [Not Recovered/Not Resolved]
  - Vomiting [Recovered/Resolved]
  - Diarrhoea [Recovered/Resolved]
  - Application site pruritus [Not Recovered/Not Resolved]
  - Inadequate analgesia [Not Recovered/Not Resolved]
  - Drug administration error [Not Recovered/Not Resolved]
  - Product quality issue [Not Recovered/Not Resolved]
